FAERS Safety Report 7452109-6 (Version None)
Quarter: 2011Q2

REPORT INFORMATION
  Report Type: 
  Country: None (occurrence: None)
  Receive Date: 20110502
  Receipt Date: 20110405
  Transmission Date: 20111010
  Serious: Yes (Other)
  Sender: FDA-Public Use
  Company Number: FR-PFIZER INC-2011092666

PATIENT
  Sex: Female

DRUGS (4)
  1. TERALITHE [Suspect]
     Indication: BIPOLAR DISORDER
     Dosage: 400MG TABLET, 2.5 DF DAILY
     Dates: start: 20100607, end: 20110222
  2. LEVOTHYROX [Suspect]
     Indication: HYPOTHYROIDISM
     Dosage: 75 UG, 1X/DAY
     Dates: start: 20100607, end: 20110222
  3. LARGACTIL [Suspect]
     Indication: BIPOLAR DISORDER
     Dosage: 45 DROPS DAILY
     Dates: start: 20100607, end: 20110222
  4. XANAX [Suspect]
     Indication: BIPOLAR DISORDER
     Dosage: 3 TABLETS/DAY
     Dates: start: 20100607, end: 20110222

REACTIONS (1)
  - SINGLE UMBILICAL ARTERY [None]
